FAERS Safety Report 11523896 (Version 1)
Quarter: 2015Q3

REPORT INFORMATION
  Report Type: Spontaneous
  Country: US (occurrence: US)
  Receive Date: 20150918
  Receipt Date: 20150918
  Transmission Date: 20151125
  Serious: No
  Sender: FDA-Public Use
  Company Number: US-ROCHE-706768

PATIENT
  Sex: Female

DRUGS (3)
  1. PEGASYS [Suspect]
     Active Substance: PEGINTERFERON ALFA-2A
     Indication: HEPATITIS C
     Dosage: FORM: PFS
     Route: 065
     Dates: start: 20100505, end: 20100519
  2. COPEGUS [Suspect]
     Active Substance: RIBAVIRIN
     Indication: HEPATITIS C
     Route: 048
     Dates: start: 20100505, end: 20100519
  3. ATIVAN [Concomitant]
     Active Substance: LORAZEPAM
     Route: 065

REACTIONS (10)
  - Memory impairment [Unknown]
  - Dizziness [Unknown]
  - Oral herpes [Unknown]
  - Cognitive disorder [Unknown]
  - Mental status changes [Unknown]
  - Anger [Unknown]
  - Anxiety [Unknown]
  - Rash [Unknown]
  - Nervousness [Unknown]
  - Urticaria [Unknown]
